FAERS Safety Report 9848006 (Version 1)
Quarter: 2013Q4

REPORT INFORMATION
  Report Type: Spontaneous
  Country: US (occurrence: None)
  Receive Date: 20131226
  Receipt Date: 20131226
  Transmission Date: 20140711
  Serious: Yes (Other)
  Sender: FDA-Public Use
  Company Number: PHEH2013US003556

PATIENT
  Age: 64 Year
  Sex: Male

DRUGS (3)
  1. TEKTURNA HCT [Suspect]
     Indication: BLOOD PRESSURE
  2. DIOVAN HCT [Suspect]
  3. COZAAR (LOSARTAN POTASSIUM) (50 MILLIGRAM, TABLETS) (LOSARTAN POTASSIUM) [Suspect]

REACTIONS (2)
  - Blood pressure increased [None]
  - Sensation of pressure [None]
